FAERS Safety Report 13756887 (Version 1)
Quarter: 2017Q3

REPORT INFORMATION
  Report Type: Spontaneous
  Country: SE (occurrence: SE)
  Receive Date: 20170714
  Receipt Date: 20170714
  Transmission Date: 20171127
  Serious: Yes (Hospitalization, Other)
  Sender: FDA-Public Use
  Company Number: SE-BRISTOL-MYERS SQUIBB COMPANY-BMS-2017-053402

PATIENT
  Age: 59 Year
  Sex: Female

DRUGS (1)
  1. OPDIVO [Suspect]
     Active Substance: NIVOLUMAB
     Indication: LUNG CARCINOMA CELL TYPE UNSPECIFIED STAGE IV
     Dosage: UNAV.
     Route: 065
     Dates: start: 201701

REACTIONS (8)
  - Chest pain [Recovered/Resolved]
  - Infusion related reaction [Recovered/Resolved]
  - Malignant neoplasm progression [Unknown]
  - Infection [Unknown]
  - Dyspnoea [Unknown]
  - Hypoxia [Unknown]
  - Back pain [Recovered/Resolved]
  - Thyroxine increased [Unknown]

NARRATIVE: CASE EVENT DATE: 201703
